FAERS Safety Report 18541640 (Version 3)
Quarter: 2021Q2

REPORT INFORMATION
  Report Type: Report from Study
  Country: US (occurrence: US)
  Receive Date: 20201124
  Receipt Date: 20210528
  Transmission Date: 20210717
  Serious: Yes (Other)
  Sender: FDA-Public Use
  Company Number: US-TAKEDA-US202025870

PATIENT
  Sex: Female

DRUGS (1)
  1. HUMAN IMMUNOGLOBULIN; HYALURONIDASE [Suspect]
     Active Substance: HUMAN IMMUNOGLOBULIN G\HYALURONIDASE RECOMBINANT HUMAN
     Indication: PRIMARY IMMUNODEFICIENCY SYNDROME
     Dosage: 60 GRAM, EVERY 3 WK
     Route: 065

REACTIONS (6)
  - Colostomy [Unknown]
  - Impaired gastric emptying [Unknown]
  - Colitis [Unknown]
  - Pneumonia [Unknown]
  - Dehydration [Unknown]
  - Product dose omission issue [Unknown]
